FAERS Safety Report 4679292-X (Version None)
Quarter: 2005Q2

REPORT INFORMATION
  Report Type: 
  Country: None (occurrence: None)
  Receive Date: 20050527
  Receipt Date: 20050516
  Transmission Date: 20051028
  Serious: Yes (Other)
  Sender: FDA-Public Use
  Company Number: 701202

PATIENT
  Age: 45 Year
  Sex: Female

DRUGS (6)
  1. AMEVIVE [Suspect]
     Indication: PSORIASIS
     Dosage: 15 MG; QW; IM
     Route: 030
     Dates: start: 20030930, end: 20030930
  2. DILANTIN [Concomitant]
  3. VALIUM [Concomitant]
  4. PERCOCET [Concomitant]
  5. SYNALAR OINTMENT [Concomitant]
  6. EUCERIN [Concomitant]

REACTIONS (8)
  - ASTHENIA [None]
  - CHEST DISCOMFORT [None]
  - DIZZINESS [None]
  - DYSPNOEA [None]
  - SWOLLEN TONGUE [None]
  - THROAT TIGHTNESS [None]
  - URTICARIA [None]
  - VISION BLURRED [None]
